FAERS Safety Report 7087972-4 (Version None)
Quarter: 2010Q4

REPORT INFORMATION
  Report Type: 
  Country: None (occurrence: None)
  Receive Date: 20101108
  Receipt Date: 20101026
  Transmission Date: 20110411
  Serious: Yes (Hospitalization)
  Sender: FDA-Public Use
  Company Number: BR-ELI_LILLY_AND_COMPANY-BR201007006530

PATIENT
  Sex: Female
  Weight: 67 kg

DRUGS (5)
  1. FORTEO [Suspect]
     Dosage: UNK, UNKNOWN
     Route: 065
  2. FORTEO [Suspect]
     Dosage: UNK, UNKNOWN
     Route: 065
  3. BUDESONIDE [Concomitant]
     Indication: LUNG DISORDER
     Dosage: UNK, UNKNOWN
     Route: 055
  4. FORADIL [Concomitant]
     Indication: LUNG DISORDER
     Dosage: UNK, UNKNOWN
     Route: 055
  5. SPIRIVA [Concomitant]
     Indication: LUNG DISORDER
     Dosage: UNK, UNKNOWN
     Route: 055

REACTIONS (4)
  - DYSPNOEA [None]
  - EMPHYSEMA [None]
  - FATIGUE [None]
  - HYPERTENSION [None]
